FAERS Safety Report 6391840-0 (Version None)
Quarter: 2009Q4

REPORT INFORMATION
  Report Type: 
  Country: None (occurrence: None)
  Receive Date: 20091005
  Receipt Date: 20090917
  Transmission Date: 20100525
  Serious: Yes (Hospitalization)
  Sender: FDA-Public Use
  Company Number: MC200900362

PATIENT
  Age: 75 Year
  Sex: Female
  Weight: 70 kg

DRUGS (8)
  1. ANGIOMAX [Suspect]
     Dosage: 7 MG, BOLUS, INTRAVENOUS ; 35 MG, BOLUS, INTRAVENOUS
     Route: 040
     Dates: start: 20090811, end: 20090811
  2. ANGIOMAX [Suspect]
     Dosage: 7 MG, BOLUS, INTRAVENOUS ; 35 MG, BOLUS, INTRAVENOUS
     Route: 040
     Dates: start: 20090811, end: 20090811
  3. ANGIOMAX [Suspect]
     Dosage: 17.5 MG, INTRAVENOUS ; 122 MG, INTRAVENOUS ; 17.5 MG, INTRAVENOUS
     Route: 042
     Dates: start: 20090811, end: 20090811
  4. ANGIOMAX [Suspect]
     Dosage: 17.5 MG, INTRAVENOUS ; 122 MG, INTRAVENOUS ; 17.5 MG, INTRAVENOUS
     Route: 042
     Dates: start: 20090811, end: 20090811
  5. ANGIOMAX [Suspect]
     Dosage: 17.5 MG, INTRAVENOUS ; 122 MG, INTRAVENOUS ; 17.5 MG, INTRAVENOUS
     Route: 042
     Dates: start: 20090811, end: 20090812
  6. ASPIRIN [Concomitant]
  7. CLOPIDOGREL [Concomitant]
  8. ENOXAPARIN SODIUM [Concomitant]

REACTIONS (3)
  - FAECES DISCOLOURED [None]
  - NAUSEA [None]
  - RED BLOOD CELL COUNT DECREASED [None]
